FAERS Safety Report 10042222 (Version 1)
Quarter: 2014Q1

REPORT INFORMATION
  Report Type: Report from Study
  Country: DE (occurrence: DE)
  Receive Date: 20140327
  Receipt Date: 20140327
  Transmission Date: 20141002
  Serious: Yes (Hospitalization)
  Sender: FDA-Public Use
  Company Number: DE-GLAXOSMITHKLINE-B0977802A

PATIENT
  Age: 66 Year
  Sex: Female
  Weight: 77 kg

DRUGS (1)
  1. VOTRIENT [Suspect]
     Indication: SARCOMA
     Route: 048
     Dates: start: 20120423

REACTIONS (1)
  - Inflammation [Not Recovered/Not Resolved]
